FAERS Safety Report 6976541-X (Version None)
Quarter: 2010Q3

REPORT INFORMATION
  Report Type: 
  Country: None (occurrence: None)
  Receive Date: 20100910
  Receipt Date: 20100830
  Transmission Date: 20110219
  Serious: Yes (Other)
  Sender: FDA-Public Use
  Company Number: SE-PFIZER INC-2010114022

PATIENT
  Age: 35 Year
  Sex: Female

DRUGS (3)
  1. ATARAX [Suspect]
     Indication: DEPRESSION
     Dosage: 10 MG, AS NEEDED
     Route: 061
     Dates: start: 20080305, end: 20080620
  2. MIRTAZAPINE [Suspect]
     Indication: DEPRESSION
     Dosage: 15 MG, UNK
     Route: 048
     Dates: start: 20080305, end: 20080620
  3. MIRTAZAPINE [Suspect]
     Dosage: 15 MG, UNK
     Route: 048
     Dates: start: 20080820, end: 20080801

REACTIONS (1)
  - HEPATIC ENZYME INCREASED [None]
